FAERS Safety Report 18657692 (Version 3)
Quarter: 2021Q1

REPORT INFORMATION
  Report Type: Spontaneous
  Country: US (occurrence: US)
  Receive Date: 20201223
  Receipt Date: 20210317
  Transmission Date: 20210419
  Serious: Yes (Other)
  Sender: FDA-Public Use
  Company Number: US-TEVA-2020-US-1861230

PATIENT
  Sex: Male

DRUGS (17)
  1. VALSARTAN/HYDROCHLOROTHIAZIDE AUROBINDO [Suspect]
     Active Substance: HYDROCHLOROTHIAZIDE\VALSARTAN
     Indication: HYPERTENSION
     Dosage: DOSAGE: 160/25MG
     Route: 065
     Dates: start: 20171123, end: 20180815
  2. VALSARTAN AUROBINDO [Suspect]
     Active Substance: VALSARTAN
     Indication: HYPERTENSION
     Dosage: DOSAGE: 160MG
     Route: 065
     Dates: start: 20180604, end: 20180904
  3. ATORVASTATIN [Concomitant]
     Active Substance: ATORVASTATIN
     Indication: HYPERLIPIDAEMIA
     Dosage: 40 MILLIGRAM DAILY; DOSAGE: 40MG; 1 PER DAY
     Dates: start: 2018
  4. VITAMIN D [Concomitant]
     Active Substance: VITAMIN D NOS
     Indication: HYPOVITAMINOSIS
     Dosage: 75 MILLIGRAM DAILY; DOSAGE: 75MG; 1 PER DAY
  5. ASPIRIN. [Concomitant]
     Active Substance: ASPIRIN
     Indication: CARDIAC DISORDER
     Dosage: 81 MILLIGRAM DAILY; DOSAGE: 81MILLIGRAM, 1 PER DAY
     Dates: start: 1978
  6. MULTIVITAMIN [Concomitant]
     Active Substance: VITAMINS
     Indication: ROUTINE HEALTH MAINTENANCE
     Dosage: 1 PER DAY
     Dates: start: 2018
  7. VALSARTAN/HYDROCHLOROTHIAZIDE [Suspect]
     Active Substance: HYDROCHLOROTHIAZIDE\VALSARTAN
     Indication: HYPERTENSION
     Dosage: DOSAGE: 160/25MILLIGRAM,
     Route: 065
     Dates: start: 20130708, end: 20140514
  8. AMLODIPINE [Concomitant]
     Active Substance: AMLODIPINE BESYLATE
  9. RANEXA [Concomitant]
     Active Substance: RANOLAZINE
     Indication: CORONARY ARTERY DISEASE
     Dosage: 500 MILLIGRAM DAILY; DOSAGE: 500MG; 1 PER DAY
     Dates: start: 2018
  10. JANUMET [Concomitant]
     Active Substance: METFORMIN HYDROCHLORIDE\SITAGLIPTIN PHOSPHATE
     Indication: DIABETES MELLITUS
     Dosage: DOSAGE: 50?1000MG; 2 PER DAY
  11. METOPROLOL. [Concomitant]
     Active Substance: METOPROLOL
     Indication: HYPERTENSION
     Dosage: DOSAGE: 50MILLIGRAM
  12. LEVOTHYROXINE. [Concomitant]
     Active Substance: LEVOTHYROXINE
     Indication: HYPOTHYROIDISM
     Dosage: 80 MICROGRAM DAILY; DOSAGE: 88 MCG; 1 PER DAY
  13. CLOPIDOGREL [Concomitant]
     Active Substance: CLOPIDOGREL BISULFATE
     Indication: CEREBROVASCULAR ACCIDENT
     Dosage: 75 MILLIGRAM DAILY; DOSAGE: 75 MILLIGRAM, 1 PER DAY
     Dates: start: 2018
  14. TOPIRAMATE. [Concomitant]
     Active Substance: TOPIRAMATE
     Indication: SEIZURE
     Dosage: 25 MILLIGRAM DAILY; DOSAGE: 25MILLIGRAM; 1 PER DAY
     Dates: start: 1975
  15. VALSARTAN/HYDROCHLOROTHIAZIDE [Suspect]
     Active Substance: HYDROCHLOROTHIAZIDE\VALSARTAN
     Dosage: DOSAGE: 160/25MILLIGRAM,
     Route: 065
     Dates: start: 20150923, end: 20171122
  16. GLIPIZIDE. [Concomitant]
     Active Substance: GLIPIZIDE
     Indication: DIABETES MELLITUS
     Dosage: DOSAGE: 50MG
  17. VALSARTAN/HYDROCHLOROTHIAZIDE SOLCO [Suspect]
     Active Substance: HYDROCHLOROTHIAZIDE\VALSARTAN
     Indication: HYPERTENSION
     Route: 065

REACTIONS (2)
  - Small intestine carcinoma [Unknown]
  - Colorectal cancer [Unknown]
